FAERS Safety Report 7827906-5 (Version None)
Quarter: 2011Q4

REPORT INFORMATION
  Report Type: 
  Country: None (occurrence: None)
  Receive Date: 20111020
  Receipt Date: 20111007
  Transmission Date: 20120403
  Serious: Yes (Hospitalization, Other)
  Sender: FDA-Public Use
  Company Number: AR-ELI_LILLY_AND_COMPANY-AR201108004665

PATIENT
  Age: 75 Year
  Sex: Female

DRUGS (7)
  1. NIMODIPINE [Concomitant]
  2. OMEPRAZOLE [Concomitant]
  3. CARVEDILOL [Concomitant]
  4. FORTEO [Suspect]
     Indication: OSTEOPOROSIS
     Dosage: UNK UNK, QD
     Route: 058
     Dates: start: 20110719
  5. ALPLAX [Concomitant]
  6. LEVOTHYROXINE SODIUM [Concomitant]
  7. BILETAN [Concomitant]

REACTIONS (6)
  - COLITIS [None]
  - CORONARY ARTERY DISEASE [None]
  - PAIN IN EXTREMITY [None]
  - AORTIC ANEURYSM [None]
  - DISCOMFORT [None]
  - HYPERTENSION [None]
